FAERS Safety Report 4277731-X (Version None)
Quarter: 2004Q1

REPORT INFORMATION
  Report Type: 
  Country: None (occurrence: None)
  Receive Date: 20040121
  Receipt Date: 20040109
  Transmission Date: 20041129
  Serious: Yes (Hospitalization)
  Sender: FDA-Public Use
  Company Number: AT-SHR-03-017443

PATIENT
  Age: 35 Year
  Sex: Female

DRUGS (1)
  1. MIRENA [Suspect]
     Indication: CONTRACEPTION
     Dosage: 20 UG, CONT, INTRA-UTERINE
     Route: 015
     Dates: start: 20021204, end: 20030401

REACTIONS (6)
  - ANAL CANCER [None]
  - ANAL FISSURE [None]
  - BARTHOLINITIS [None]
  - DYSPNOEA [None]
  - FEMALE GENITAL-DIGESTIVE TRACT FISTULA [None]
  - HAEMORRHOIDS [None]
